FAERS Safety Report 25993653 (Version 2)
Quarter: 2025Q4

REPORT INFORMATION
  Report Type: Report from Study
  Country: JP (occurrence: JP)
  Receive Date: 20251104
  Receipt Date: 20251219
  Transmission Date: 20260117
  Serious: Yes (Other)
  Sender: CSL BEHRING
  Company Number: JP-BEH-2025223704

PATIENT
  Age: 60 Year
  Sex: Female
  Weight: 60 kg

DRUGS (6)
  1. BERINERT [Suspect]
     Active Substance: HUMAN C1-ESTERASE INHIBITOR
     Indication: Hereditary angioedema
     Dosage: 7.5 ML, BIW
     Route: 058
     Dates: start: 20230710, end: 20230714
  2. BERINERT [Suspect]
     Active Substance: HUMAN C1-ESTERASE INHIBITOR
     Indication: Prophylaxis
     Dosage: 7.5 ML, QW
     Route: 058
     Dates: start: 20230719, end: 20230719
  3. BERINERT [Suspect]
     Active Substance: HUMAN C1-ESTERASE INHIBITOR
     Dosage: 7.5 ML, BIW
     Route: 058
     Dates: start: 20230724
  4. FIRAZYR [Concomitant]
     Active Substance: ICATIBANT ACETATE
     Indication: Hereditary angioedema
     Dosage: 30 MG
     Route: 058
  5. FIRAZYR [Concomitant]
     Active Substance: ICATIBANT ACETATE
     Indication: Prophylaxis
  6. FIRAZYR [Concomitant]
     Active Substance: ICATIBANT ACETATE
     Indication: Hereditary angioedema

REACTIONS (3)
  - Hereditary angioedema [Unknown]
  - Abdominal symptom [Unknown]
  - Off label use [Unknown]

NARRATIVE: CASE EVENT DATE: 20230714
